FAERS Safety Report 18936202 (Version 1)
Quarter: 2021Q1

REPORT INFORMATION
  Report Type: Other
  Country: FR (occurrence: FR)
  Receive Date: 20210225
  Receipt Date: 20210225
  Transmission Date: 20210420
  Serious: Yes (Other)
  Sender: FDA-Public Use
  Company Number: FR-APOTEX-2021AP004173

PATIENT
  Age: 48 Year
  Sex: Male

DRUGS (1)
  1. PAROXETINE. [Suspect]
     Active Substance: PAROXETINE
     Indication: DEPRESSION
     Dosage: 20 MG
     Route: 048
     Dates: start: 2018

REACTIONS (1)
  - Torticollis [Not Recovered/Not Resolved]

NARRATIVE: CASE EVENT DATE: 202003
